FAERS Safety Report 4313339-5 (Version None)
Quarter: 2004Q1

REPORT INFORMATION
  Report Type: 
  Country: None (occurrence: None)
  Receive Date: 20040304
  Receipt Date: 20040224
  Transmission Date: 20041129
  Serious: Yes (Hospitalization)
  Sender: FDA-Public Use
  Company Number: JP-JNJFOC-20040202042

PATIENT
  Age: 77 Year
  Sex: Male

DRUGS (11)
  1. OFLOXACIN [Suspect]
     Indication: URINARY TRACT INFECTION
     Dosage: 400 MG
     Dates: start: 20031218, end: 20040106
  2. CAMPTOSAR [Suspect]
     Indication: COLORECTAL CANCER
     Dosage: 150 MG/M2, INTRAVENOUS
     Route: 042
     Dates: start: 20040114, end: 20040114
  3. FOLINIC ACID (FOLINIC ACID) [Suspect]
     Indication: COLORECTAL CANCER
     Dosage: 200 MG/M2, INTRAVENOUS
     Route: 042
     Dates: start: 20040114, end: 20040115
  4. FLUOROURACIL [Suspect]
     Indication: COLORECTAL CANCER
     Dosage: 400 MG/M2, INTRAVENOUS BOLUS;  600 MG/2, INTRAVENOUS BOLUS
     Route: 040
     Dates: start: 20040114, end: 20040115
  5. FLUOROURACIL [Suspect]
     Indication: COLORECTAL CANCER
     Dosage: 400 MG/M2, INTRAVENOUS BOLUS;  600 MG/2, INTRAVENOUS BOLUS
     Route: 040
     Dates: start: 20040114, end: 20040115
  6. ZOCOR [Concomitant]
  7. SOPROL (BISOPROLOL FUMARATE) [Concomitant]
  8. AMLODIPINE BESYLATE [Concomitant]
  9. XANAX [Concomitant]
  10. EFFERALGAN CODEINE (PANADEINE CO) [Concomitant]
  11. PRIMPERAN TAB [Concomitant]

REACTIONS (1)
  - COLITIS [None]
